FAERS Safety Report 7797708-7 (Version None)
Quarter: 2011Q4

REPORT INFORMATION
  Report Type: 
  Country: None (occurrence: None)
  Receive Date: 20111005
  Receipt Date: 20110928
  Transmission Date: 20120403
  Serious: Yes (Death, Hospitalization, Other)
  Sender: FDA-Public Use
  Company Number: EC-BAXTER-2011BH030728

PATIENT
  Age: 90 Year
  Sex: Male

DRUGS (3)
  1. BUMINATE 25% [Suspect]
     Route: 042
     Dates: start: 20110921, end: 20110921
  2. LEVOFLOXACIN [Concomitant]
     Indication: BRONCHOPNEUMONIA
     Route: 065
  3. BUMINATE 25% [Suspect]
     Indication: HYPOALBUMINAEMIA
     Route: 042
     Dates: start: 20110922, end: 20110922

REACTIONS (3)
  - DEATH [None]
  - CYANOSIS [None]
  - OXYGEN SATURATION DECREASED [None]
